FAERS Safety Report 5762702-4 (Version None)
Quarter: 2008Q2

REPORT INFORMATION
  Report Type: 
  Country: None (occurrence: None)
  Receive Date: 20080609
  Receipt Date: 20080603
  Transmission Date: 20081010
  Serious: Yes (Hospitalization)
  Sender: FDA-Public Use
  Company Number: CH-MERCK-0806CHE00001

PATIENT
  Age: 40 Year
  Sex: Female

DRUGS (2)
  1. NOROXIN [Suspect]
     Indication: PROPHYLAXIS
     Route: 048
     Dates: start: 20050101, end: 20050101
  2. ANTINEOPLASTIC (UNSPECIFIED) [Concomitant]
     Indication: ACUTE MYELOID LEUKAEMIA
     Route: 065
     Dates: start: 20050101

REACTIONS (2)
  - FEBRILE INFECTION [None]
  - NEUTROPENIA [None]
